FAERS Safety Report 13523541 (Version 1)
Quarter: 2017Q2

REPORT INFORMATION
  Report Type: Spontaneous
  Country: US (occurrence: US)
  Receive Date: 20170508
  Receipt Date: 20170508
  Transmission Date: 20170830
  Serious: No
  Sender: FDA-Public Use
  Company Number: US-VIFOR (INTERNATIONAL) INC.-VIT-2017-01650

PATIENT
  Age: 56 Year
  Sex: Male

DRUGS (18)
  1. VELTASSA [Suspect]
     Active Substance: PATIROMER
     Indication: BLOOD POTASSIUM INCREASED
     Route: 048
  2. ACETYLSALICYLIC ACID [Concomitant]
     Active Substance: ASPIRIN
  3. VELTASSA [Suspect]
     Active Substance: PATIROMER
     Route: 048
     Dates: start: 20161029
  4. AMLODIPINE [Concomitant]
     Active Substance: AMLODIPINE BESYLATE
  5. PLAVIX [Concomitant]
     Active Substance: CLOPIDOGREL BISULFATE
  6. LABETALOL [Concomitant]
     Active Substance: LABETALOL\LABETALOL HYDROCHLORIDE
  7. SENNOSIDE A+B [Concomitant]
     Active Substance: SENNOSIDES A AND B
  8. GASX [Concomitant]
  9. OMEPRAZOLE. [Concomitant]
     Active Substance: OMEPRAZOLE
  10. CLONIDINE. [Concomitant]
     Active Substance: CLONIDINE
  11. FENTANYL. [Concomitant]
     Active Substance: FENTANYL
  12. PROAIR HFA [Concomitant]
     Active Substance: ALBUTEROL SULFATE
  13. VELTASSA [Suspect]
     Active Substance: PATIROMER
     Route: 048
  14. MINOXIDIL. [Concomitant]
     Active Substance: MINOXIDIL
  15. GABAPENTIN. [Concomitant]
     Active Substance: GABAPENTIN
  16. MIDODRINE [Concomitant]
     Active Substance: MIDODRINE
  17. FOSRENOL [Concomitant]
     Active Substance: LANTHANUM CARBONATE
  18. XANAX [Concomitant]
     Active Substance: ALPRAZOLAM

REACTIONS (11)
  - Inappropriate schedule of drug administration [Unknown]
  - Drug ineffective [Unknown]
  - Off label use [Unknown]
  - Constipation [Not Recovered/Not Resolved]
  - Vomiting [Not Recovered/Not Resolved]
  - Abdominal discomfort [Not Recovered/Not Resolved]
  - Product solubility abnormal [Unknown]
  - Product preparation error [Unknown]
  - Product physical issue [Unknown]
  - Malaise [Not Recovered/Not Resolved]
  - Product taste abnormal [Unknown]

NARRATIVE: CASE EVENT DATE: 20170215
